FAERS Safety Report 8916936 (Version 1)
Quarter: 2012Q4

REPORT INFORMATION
  Report Type: 
  Country: US (occurrence: US)
  Receive Date: 20121120
  Receipt Date: 20121120
  Transmission Date: 20130627
  Serious: No
  Sender: FDA-Public Use
  Company Number: US-B.I. PHARMACEUTICALS,INC./RIDGEFIELD-2012-BI-00623BP

PATIENT
  Sex: Female
  Weight: 79.38 kg

DRUGS (3)
  1. MOBIC [Suspect]
     Indication: ARTHRALGIA
     Dates: start: 2012, end: 201208
  2. ATENOLOL [Concomitant]
     Indication: HYPERTENSION
     Dosage: 50 mg
  3. CARDIZEM [Concomitant]
     Indication: HYPERTENSION
     Dosage: 240 mg

REACTIONS (1)
  - Abdominal discomfort [Unknown]
